FAERS Safety Report 6079214-3 (Version None)
Quarter: 2009Q1

REPORT INFORMATION
  Report Type: 
  Country: None (occurrence: None)
  Receive Date: 20090216
  Receipt Date: 20090212
  Transmission Date: 20090719
  Serious: Yes (Life-Threatening, Hospitalization)
  Sender: FDA-Public Use
  Company Number: B0559334A

PATIENT
  Age: 68 Year
  Sex: Female

DRUGS (13)
  1. REQUIP [Suspect]
     Dosage: .5MG TWICE PER DAY
     Route: 048
     Dates: start: 20061005
  2. SIMVASTATIN [Concomitant]
     Dosage: 10MG PER DAY
     Route: 048
  3. BETAHISTINE [Concomitant]
     Dosage: 8MG THREE TIMES PER DAY
     Route: 048
  4. EUTHYROX [Concomitant]
     Dosage: 125MCG PER DAY
     Route: 048
  5. ADARTREL [Concomitant]
     Dosage: .5MG TWICE PER DAY
     Route: 048
  6. BUMETANIDE [Concomitant]
     Dosage: 1MG PER DAY
     Route: 048
  7. ENALAPRIL [Concomitant]
     Dosage: 20MG PER DAY
     Route: 048
  8. METFORMIN HCL [Concomitant]
     Dosage: 500MG PER DAY
     Route: 048
  9. MOVICOLON [Concomitant]
     Route: 048
  10. ACETYLSALICYLZUUR [Concomitant]
     Dosage: 80MG PER DAY
     Route: 048
  11. OMEPRAZOLE [Concomitant]
     Dosage: 20MG TWICE PER DAY
     Route: 048
  12. HYDROCHLOROTHIAZIDE [Concomitant]
     Dosage: 12.5MG PER DAY
     Route: 048
  13. BECLOMETHASON [Concomitant]
     Route: 065

REACTIONS (1)
  - PERICARDITIS CONSTRICTIVE [None]
